FAERS Safety Report 6818689-6 (Version None)
Quarter: 2010Q3

REPORT INFORMATION
  Report Type: 
  Country: None (occurrence: None)
  Receive Date: 20100706
  Receipt Date: 20100623
  Transmission Date: 20110219
  Serious: Yes (Hospitalization)
  Sender: FDA-Public Use
  Company Number: JP-AMGEN-US184406

PATIENT
  Sex: Female
  Weight: 60 kg

DRUGS (17)
  1. ENBREL [Suspect]
     Indication: RHEUMATOID ARTHRITIS
     Route: 058
     Dates: start: 20060228, end: 20060418
  2. PREDONINE [Suspect]
     Indication: RHEUMATOID ARTHRITIS
     Route: 048
  3. PROGRAF [Suspect]
     Indication: RHEUMATOID ARTHRITIS
     Route: 048
     Dates: start: 20060327
  4. COTRIM [Concomitant]
     Route: 048
  5. TAKEPRON [Concomitant]
     Route: 048
  6. ASPIRIN [Concomitant]
     Route: 048
  7. DORNER [Concomitant]
     Route: 048
  8. FOSAMAX [Concomitant]
     Route: 048
  9. METHYCOBAL [Concomitant]
     Dosage: UNSPECIFIED
     Route: 048
  10. MAGNESIUM OXIDE [Concomitant]
     Dosage: UNSPECIFIED
     Route: 048
  11. AMITRIPTYLINE HCL [Concomitant]
     Dosage: UNSPECIFIED
     Route: 048
  12. CLONAZEPAM [Concomitant]
     Dosage: UNSPECIFIED
     Route: 048
  13. LAXOBERON [Concomitant]
     Dosage: UNSPECIFIED
     Route: 048
  14. MYSLEE [Concomitant]
     Dosage: UNSPECIFIED
     Route: 045
  15. ROHYPNOL [Concomitant]
     Dosage: UNSPECIFIED
     Route: 048
  16. LASIX [Concomitant]
     Dosage: UNSPECIFIED
     Route: 048
  17. NOVORAPID [Concomitant]
     Dosage: UNSPECIFIED
     Route: 058

REACTIONS (1)
  - PULMONARY TUBERCULOSIS [None]
